FAERS Safety Report 10158238 (Version 1)
Quarter: 2014Q2

REPORT INFORMATION
  Report Type: Spontaneous
  Country: DE (occurrence: DE)
  Receive Date: 20140507
  Receipt Date: 20140507
  Transmission Date: 20141212
  Serious: Yes (Other)
  Sender: FDA-Public Use
  Company Number: DE-B.I. PHARMACEUTICALS,INC./RIDGEFIELD-2014-BI-20094DE

PATIENT
  Sex: Female
  Weight: 50 kg

DRUGS (5)
  1. PRADAXA [Suspect]
     Indication: ATRIAL FIBRILLATION
     Dosage: 220 MG
     Route: 048
     Dates: start: 201312, end: 201405
  2. PRADAXA [Suspect]
     Indication: DEEP VEIN THROMBOSIS
  3. KREON 25000 [Concomitant]
     Indication: WHIPPLE^S DISEASE
     Dosage: DOSE PER APPLICATION: 75000 DAILY
     Route: 050
  4. ZYPREXA [Concomitant]
     Indication: DEPRESSION
     Dosage: 5 MG
     Route: 048
  5. MIRTAZAPIN [Concomitant]
     Indication: DEPRESSION
     Dosage: 15 MG
     Route: 048

REACTIONS (2)
  - Necrosis [Unknown]
  - Extremity necrosis [Unknown]
